FAERS Safety Report 9211167 (Version 1)
Quarter: 2013Q2

REPORT INFORMATION
  Report Type: Spontaneous
  Country: CO (occurrence: CO)
  Receive Date: 20130404
  Receipt Date: 20130404
  Transmission Date: 20140414
  Serious: Yes (Other)
  Sender: FDA-Public Use
  Company Number: CO-BAXTER-2013BAX012413

PATIENT
  Age: 63 Year
  Sex: Male

DRUGS (3)
  1. DIANEAL PD-2 CON DEXTROSA AL 1,5%. [Suspect]
     Indication: RENAL FAILURE CHRONIC
     Route: 033
  2. DIANEAL PD-2 CON DEXTROSA AL 2,5%. [Suspect]
     Indication: RENAL FAILURE CHRONIC
     Route: 033
  3. DIANEAL PD-2 CON DEXTROSA AL 2,5%. [Suspect]
     Indication: RENAL FAILURE CHRONIC
     Route: 033
     Dates: start: 20130327, end: 20130327

REACTIONS (1)
  - Peritoneal effluent abnormal [Recovered/Resolved]
